FAERS Safety Report 19160348 (Version 1)
Quarter: 2021Q2

REPORT INFORMATION
  Report Type: Spontaneous
  Country: BR (occurrence: BR)
  Receive Date: 20210420
  Receipt Date: 20210420
  Transmission Date: 20210717
  Serious: Yes (Other)
  Sender: FDA-Public Use
  Company Number: BR-GE HEALTHCARE LIFE SCIENCES-2021CSU001288

PATIENT

DRUGS (9)
  1. PREDNISONE. [Concomitant]
     Active Substance: PREDNISONE
     Dosage: 2.5 MG
  2. TRAMAL [Concomitant]
     Active Substance: TRAMADOL
     Indication: PAIN
  3. DULOXETINE. [Concomitant]
     Active Substance: DULOXETINE
  4. PREGABALIN. [Concomitant]
     Active Substance: PREGABALIN
  5. VISIPAQUE [Suspect]
     Active Substance: IODIXANOL
     Indication: BREAST CANCER
  6. SELOZOK [Concomitant]
     Active Substance: METOPROLOL SUCCINATE
  7. VISIPAQUE [Suspect]
     Active Substance: IODIXANOL
     Indication: POSITRON EMISSION TOMOGRAM
     Dosage: 120 ML AT 3.0 ML/SEC WITH CONTRAST TEMPERATURE AT 37 CEL, ONCE
     Route: 042
     Dates: start: 20210202, end: 20210202
  8. NORMAL SALINE [Concomitant]
     Active Substance: SODIUM CHLORIDE
     Dosage: 500 ML
     Dates: start: 20210202, end: 20210202
  9. HYDROCHLOROTHIAZIDE. [Concomitant]
     Active Substance: HYDROCHLOROTHIAZIDE

REACTIONS (3)
  - Hyperaemia [Recovered/Resolved]
  - Pruritus [Recovered/Resolved]
  - Petechiae [Recovered/Resolved]

NARRATIVE: CASE EVENT DATE: 20210203
